FAERS Safety Report 6390676-4 (Version None)
Quarter: 2009Q4

REPORT INFORMATION
  Report Type: 
  Country: None (occurrence: None)
  Receive Date: 20091006
  Receipt Date: 20090925
  Transmission Date: 20100525
  Serious: Yes (Hospitalization)
  Sender: FDA-Public Use
  Company Number: US-ELI_LILLY_AND_COMPANY-US200909006707

PATIENT
  Age: 85 Year
  Sex: Female
  Weight: 39.909 kg

DRUGS (3)
  1. FORTEO [Suspect]
     Dates: start: 20090101, end: 20090101
  2. HUMALOG [Suspect]
     Indication: DIABETES MELLITUS
  3. LANTUS [Concomitant]
     Indication: DIABETES MELLITUS

REACTIONS (2)
  - BLOOD GLUCOSE FLUCTUATION [None]
  - HOSPITALISATION [None]
